FAERS Safety Report 4743731-6 (Version None)
Quarter: 2005Q3

REPORT INFORMATION
  Report Type: 
  Country: None (occurrence: None)
  Receive Date: 20050812
  Receipt Date: 20050802
  Transmission Date: 20060218
  Serious: Yes (Death)
  Sender: FDA-Public Use
  Company Number: US-GLAXOSMITHKLINE-A0569793A

PATIENT
  Age: 11 Year
  Sex: Male

DRUGS (1)
  1. PAXIL [Suspect]
     Dosage: 10MG UNKNOWN
     Route: 048
     Dates: start: 20001017

REACTIONS (3)
  - ANGER [None]
  - COMPLETED SUICIDE [None]
  - INSOMNIA [None]
